FAERS Safety Report 15760409 (Version 2)
Quarter: 2019Q1

REPORT INFORMATION
  Report Type: Spontaneous
  Country: US (occurrence: US)
  Receive Date: 20181226
  Receipt Date: 20190111
  Transmission Date: 20190417
  Serious: Yes (Death)
  Sender: FDA-Public Use
  Company Number: US-ASTRAZENECA-2018SF68429

PATIENT
  Age: 28917 Day
  Sex: Male
  Weight: 106.6 kg

DRUGS (3)
  1. BRILINTA [Suspect]
     Active Substance: TICAGRELOR
     Indication: CARDIAC DISORDER
     Dosage: UNKNOWN, TWO TIMES A DAY
     Route: 048
     Dates: start: 201807
  2. BRILINTA [Suspect]
     Active Substance: TICAGRELOR
     Indication: STENT PLACEMENT
     Dosage: UNKNOWN, TWO TIMES A DAY
     Route: 048
     Dates: start: 201807
  3. ELIQUIS [Concomitant]
     Active Substance: APIXABAN
     Indication: CARDIAC DISORDER
     Dosage: UNKNOWN
     Route: 064

REACTIONS (5)
  - Myocardial infarction [Fatal]
  - Cardiac disorder [Fatal]
  - Weight decreased [Fatal]
  - Cardio-respiratory arrest [Fatal]
  - Renal failure [Fatal]

NARRATIVE: CASE EVENT DATE: 20181127
